FAERS Safety Report 9170210 (Version 1)
Quarter: 2013Q1

REPORT INFORMATION
  Report Type: Spontaneous
  Country: US (occurrence: None)
  Receive Date: 20130315
  Receipt Date: 20130315
  Transmission Date: 20140127
  Serious: Yes (Other)
  Sender: FDA-Public Use
  Company Number: None

PATIENT
  Age: 70 Year
  Sex: Male

DRUGS (1)
  1. STIVARGA 40MG BAYER [Suspect]
     Indication: COLON CANCER
     Route: 048
     Dates: start: 20130123

REACTIONS (5)
  - Blister [None]
  - Gait disturbance [None]
  - Dyspnoea [None]
  - Dizziness [None]
  - Weight decreased [None]
